FAERS Safety Report 24129358 (Version 1)
Quarter: 2024Q3

REPORT INFORMATION
  Report Type: Spontaneous
  Country: US (occurrence: US)
  Receive Date: 20240723
  Receipt Date: 20240723
  Transmission Date: 20241016
  Serious: Yes (Other)
  Sender: ELI LILLY AND CO
  Company Number: US-ELI_LILLY_AND_COMPANY-US202407011923

PATIENT
  Age: 2 Year
  Sex: Male

DRUGS (2)
  1. BARICITINIB [Suspect]
     Active Substance: BARICITINIB
     Indication: CANDLE syndrome
     Dosage: 2 MG, TID
     Route: 065
  2. BARICITINIB [Suspect]
     Active Substance: BARICITINIB
     Dosage: 5 MG, DAILY
     Route: 065

REACTIONS (2)
  - BK virus infection [Unknown]
  - Off label use [Unknown]
